FAERS Safety Report 9581312 (Version 4)
Quarter: 2014Q2

REPORT INFORMATION
  Report Type: Spontaneous
  Country: AU (occurrence: AU)
  Receive Date: 20131002
  Receipt Date: 20140403
  Transmission Date: 20141212
  Serious: Yes (Death)
  Sender: FDA-Public Use
  Company Number: AU-CELGENEUS-008-C4047-13094187

PATIENT
  Age: 64 Year
  Sex: Female

DRUGS (10)
  1. CC-4047 [Suspect]
     Indication: PLASMA CELL MYELOMA RECURRENT
     Dosage: 4 MILLIGRAM
     Route: 048
     Dates: start: 20130502, end: 20130830
  2. DEXAMETHASONE [Suspect]
     Indication: PLASMA CELL MYELOMA
     Dosage: 4 MILLIGRAM
     Route: 065
     Dates: start: 201305, end: 201309
  3. AUGMENTIN DUO FORTE [Concomitant]
     Indication: INFECTION
     Dosage: 875/125MG
     Route: 065
     Dates: start: 20130910
  4. HYDROMORPHONE [Concomitant]
     Indication: PAIN
     Dosage: 30 MILLIGRAM
     Route: 065
  5. MOVICOL [Concomitant]
     Indication: CONSTIPATION
     Dosage: 1 - 2
     Route: 065
  6. PARACETAMOL [Concomitant]
     Indication: PAIN
     Dosage: 4 GRAM
     Route: 065
  7. PREGABALIN [Concomitant]
     Indication: PAIN
     Dosage: 300 MILLIGRAM
     Route: 065
  8. TRANEXAMIC ACID [Concomitant]
     Indication: HAEMORRHAGE
     Dosage: 1500 MILLIGRAM
     Route: 065
  9. TRANEXAMIC ACID [Concomitant]
     Indication: PLATELET COUNT DECREASED
  10. ESOMEPRAZOLE [Concomitant]
     Indication: GASTROOESOPHAGEAL REFLUX DISEASE
     Dosage: 40 MILLIGRAM
     Route: 065

REACTIONS (2)
  - Sepsis [Fatal]
  - Plasma cell myeloma [Fatal]
